FAERS Safety Report 4564990-9 (Version None)
Quarter: 2005Q1

REPORT INFORMATION
  Report Type: 
  Country: None (occurrence: None)
  Receive Date: 20050126
  Receipt Date: 20050114
  Transmission Date: 20050727
  Serious: Yes (Hospitalization, Other)
  Sender: FDA-Public Use
  Company Number: 2004081874

PATIENT
  Age: 61 Year
  Sex: Male

DRUGS (7)
  1. LIPITOR [Suspect]
     Indication: HYPERLIPIDAEMIA
     Dosage: 10 MG (1 IN 1 D), ORAL
     Route: 048
     Dates: start: 20040909, end: 20041015
  2. PL GRAN        (CAFFEINE, PRACETAMOL, PROMETHAZINE METHYLENE DISALICYL [Concomitant]
  3. LOXOPROFEN SODIUM                   (LOXOPROFEN SODIUM) [Concomitant]
  4. MARZULENE S                  (LEVOGLUTAMIDE, SODIUM GUALENATE) [Concomitant]
  5. LANSOPRAZOLE [Concomitant]
  6. CETRAXATE HYDROCHLORIDE           (CETRAXATE HYDROCHLORIDE) [Concomitant]
  7. LACTOBACILLUS BIFIDUS, LYOPHILIZED        (LACTOBACILLUS BIFIDUS, LYOP [Concomitant]

REACTIONS (16)
  - ALCOHOLIC LIVER DISEASE [None]
  - ASTHENIA [None]
  - BLOOD CHOLESTEROL INCREASED [None]
  - CHROMATURIA [None]
  - DIALYSIS [None]
  - DISEASE RECURRENCE [None]
  - DUODENAL ULCER [None]
  - GASTRODUODENAL ULCER [None]
  - HEPATIC STEATOSIS [None]
  - HEPATIC TRAUMA [None]
  - HEPATITIS ACUTE [None]
  - HEPATITIS FULMINANT [None]
  - LIVER DISORDER [None]
  - MALAISE [None]
  - MYALGIA [None]
  - NASOPHARYNGITIS [None]
